FAERS Safety Report 21507127 (Version 2)
Quarter: 2022Q4

REPORT INFORMATION
  Report Type: Spontaneous
  Country: US (occurrence: US)
  Receive Date: 20221026
  Receipt Date: 20221028
  Transmission Date: 20230113
  Serious: Yes (Hospitalization)
  Sender: FDA-Public Use
  Company Number: US-ABBVIE-4176073

PATIENT

DRUGS (2)
  1. HUMIRA [Suspect]
     Active Substance: ADALIMUMAB
     Indication: Rheumatoid arthritis
     Route: 058
  2. LEUPROLIDE [Concomitant]
     Active Substance: LEUPROLIDE
     Indication: Product used for unknown indication
     Dosage: 7.5 MILLIGRAMS
     Dates: start: 20210116

REACTIONS (8)
  - Fall [Unknown]
  - Syncope [Unknown]
  - Hepatomegaly [Unknown]
  - Hepatic steatosis [Unknown]
  - Chest discomfort [Unknown]
  - Dizziness [Unknown]
  - Lactic acidosis [Unknown]
  - Hypertransaminasaemia [Unknown]

NARRATIVE: CASE EVENT DATE: 20220829
